FAERS Safety Report 24537645 (Version 2)
Quarter: 2024Q4

REPORT INFORMATION
  Report Type: Spontaneous
  Country: ES (occurrence: ES)
  Receive Date: 20241023
  Receipt Date: 20241223
  Transmission Date: 20250115
  Serious: Yes (Other)
  Sender: ACCORD
  Company Number: ES-JNJFOC-20231018026

PATIENT
  Age: 51 Year
  Sex: Male

DRUGS (5)
  1. BORTEZOMIB [Suspect]
     Active Substance: BORTEZOMIB
     Indication: Waldenstrom^s macroglobulinaemia
     Dosage: SECOND LINE THERAPY- STARTED FOR 6 CYCLES
  2. CYCLOPHOSPHAMIDE [Suspect]
     Active Substance: CYCLOPHOSPHAMIDE
     Indication: Waldenstrom^s macroglobulinaemia
     Dosage: GIVEN FOR 6 CYCLES - FIRST LINE THERAPY
  3. DEXAMETHASONE [Suspect]
     Active Substance: DEXAMETHASONE
     Indication: Waldenstrom^s macroglobulinaemia
     Dosage: SECOND LINE THERAPY- STARTED FOR 6 CYCLES/GIVEN FOR 6 CYCLES - FIRST LINE THERAPY
  4. IBRUTINIB [Suspect]
     Active Substance: IBRUTINIB
     Indication: Waldenstrom^s macroglobulinaemia
  5. RITUXIMAB [Suspect]
     Active Substance: RITUXIMAB
     Indication: Waldenstrom^s macroglobulinaemia
     Dosage: SECOND LINE THERAPY- STARTED FOR 6 CYCLES/GIVEN FOR 6 CYCLES - FIRST LINE THERAPY

REACTIONS (5)
  - Giardiasis [Recovered/Resolved]
  - Herpes simplex reactivation [Recovering/Resolving]
  - Malignant syphilis [Recovered/Resolved]
  - Enteritis infectious [Recovered/Resolved]
  - Disease progression [Unknown]
